FAERS Safety Report 6986533-2 (Version None)
Quarter: 2010Q3

REPORT INFORMATION
  Report Type: 
  Country: None (occurrence: None)
  Receive Date: 20100827
  Receipt Date: 20100401
  Transmission Date: 20110219
  Serious: Yes (Hospitalization)
  Sender: FDA-Public Use
  Company Number: AMAG201000193

PATIENT
  Age: 81 Year
  Sex: Female

DRUGS (10)
  1. FERAHEME [Suspect]
     Indication: IRON DEFICIENCY ANAEMIA
     Dosage: 510 MG, SINGLE, INTRAVENOUS
     Route: 042
     Dates: start: 20100331, end: 20100331
  2. SPIRVA (TIOTROPIUM BROMIDE) [Concomitant]
  3. PLAVIX [Concomitant]
  4. COREG [Concomitant]
  5. LASIX [Concomitant]
  6. LORTAB (HYDROCODONE BITARTRATE, PARACETAMOL, PROMETHAZINE HYDROCHLORID [Concomitant]
  7. ALTACE [Concomitant]
  8. PRILOSEC (OMEPRAZOLE) [Concomitant]
  9. INSULIN (INSULIN HUMAN) [Concomitant]
  10. COLCHICINE (COLCHICINE) [Concomitant]

REACTIONS (9)
  - ACUTE RESPIRATORY FAILURE [None]
  - ANAPHYLACTIC REACTION [None]
  - DYSPNOEA [None]
  - KLEBSIELLA INFECTION [None]
  - LEUKOCYTOSIS [None]
  - RASH [None]
  - RENAL FAILURE ACUTE [None]
  - TROPONIN [None]
  - VOMITING [None]
